FAERS Safety Report 7285929-1 (Version None)
Quarter: 2011Q1

REPORT INFORMATION
  Report Type: 
  Country: None (occurrence: None)
  Receive Date: 20110210
  Receipt Date: 20110204
  Transmission Date: 20110831
  Serious: Yes (Hospitalization)
  Sender: FDA-Public Use
  Company Number: NO-MERCK-1101NOR00004

PATIENT
  Age: 73 Year
  Sex: Male

DRUGS (7)
  1. CETIRIZINE HYDROCHLORIDE [Concomitant]
     Indication: URTICARIA
     Route: 048
  2. JANUVIA [Suspect]
     Indication: DIABETES MELLITUS
     Route: 048
     Dates: start: 20100501, end: 20100601
  3. GLIMEPIRIDE [Concomitant]
     Indication: DIABETES MELLITUS
     Route: 048
  4. ASPIRIN AND MAGNESIUM OXIDE [Concomitant]
     Indication: DIABETES MELLITUS
     Route: 048
  5. ZOCOR [Concomitant]
     Indication: HYPERCHOLESTEROLAEMIA
     Route: 048
  6. METFORMIN HYDROCHLORIDE [Concomitant]
     Indication: DIABETES MELLITUS
     Route: 048
  7. TAMSULOSIN HYDROCHLORIDE [Concomitant]
     Indication: PROSTATISM
     Route: 048

REACTIONS (2)
  - HEPATIC ENZYME INCREASED [None]
  - PANCREATITIS [None]
